FAERS Safety Report 12556328 (Version 1)
Quarter: 2016Q3

REPORT INFORMATION
  Report Type: Spontaneous
  Country: US (occurrence: None)
  Receive Date: 20160713
  Receipt Date: 20160713
  Transmission Date: 20161109
  Serious: Yes (Hospitalization, Other)
  Sender: FDA-Public Use
  Company Number: None

PATIENT
  Age: 59 Year
  Sex: Male
  Weight: 104.33 kg

DRUGS (7)
  1. KRILL OIL [Concomitant]
     Active Substance: DIETARY SUPPLEMENT
  2. IMODIUM [Concomitant]
     Active Substance: LOPERAMIDE HYDROCHLORIDE
  3. TESTERONE [Concomitant]
     Active Substance: TESTOSTERONE
  4. DIGESTIVE ENZYMES [Concomitant]
     Active Substance: UNSPECIFIED INGREDIENT
  5. GAS-X [Concomitant]
     Active Substance: DIMETHICONE
  6. VITAMINS [Concomitant]
     Active Substance: VITAMINS
  7. PREDNISONE 20 MG [Suspect]
     Active Substance: PREDNISONE
     Indication: POLYMYOSITIS
     Dosage: 3 PILLS DAILY BY MOUTH
     Route: 048
     Dates: start: 20160604, end: 20160604

REACTIONS (4)
  - Blood pressure increased [None]
  - Asthenia [None]
  - Muscle fatigue [None]
  - Muscle disorder [None]

NARRATIVE: CASE EVENT DATE: 20160604
